FAERS Safety Report 6326408-5 (Version None)
Quarter: 2009Q3

REPORT INFORMATION
  Report Type: 
  Country: None (occurrence: None)
  Receive Date: 20090825
  Receipt Date: 20090817
  Transmission Date: 20100115
  Serious: Yes (Other)
  Sender: FDA-Public Use
  Company Number: US-BIOGENIDEC-2008BI007685

PATIENT
  Age: 46 Year
  Sex: Female

DRUGS (3)
  1. TYSABRI [Suspect]
     Indication: MULTIPLE SCLEROSIS
     Route: 042
     Dates: start: 20071219, end: 20080317
  2. TYSABRI [Suspect]
     Route: 042
     Dates: start: 20080911, end: 20090304
  3. TYSABRI [Suspect]
     Route: 042
     Dates: start: 20090604

REACTIONS (1)
  - THYROID CANCER [None]
